FAERS Safety Report 4355424-8 (Version None)
Quarter: 2004Q2

REPORT INFORMATION
  Report Type: 
  Country: None (occurrence: None)
  Receive Date: 20040504
  Receipt Date: 20040423
  Transmission Date: 20050107
  Serious: Yes (Death)
  Sender: FDA-Public Use
  Company Number: JP-JNJFOC-20040200339

PATIENT
  Age: 68 Year
  Sex: Female

DRUGS (8)
  1. FENTANYL [Suspect]
     Indication: CANCER PAIN
     Dosage: 2.5 MG, 1 IN 3 DAY, TRANSDERMAL ; 5 MG, 1 IN 3 DAY, TRANSDERMAL
     Route: 062
     Dates: start: 20040103, end: 20040106
  2. FENTANYL [Suspect]
     Indication: CANCER PAIN
     Dosage: 2.5 MG, 1 IN 3 DAY, TRANSDERMAL ; 5 MG, 1 IN 3 DAY, TRANSDERMAL
     Route: 062
     Dates: start: 20040106, end: 20040108
  3. MORPHINE SULFATE [Suspect]
     Indication: CANCER PAIN
     Dosage: 50 MG, IN 1 DAY, ORAL
     Route: 048
     Dates: start: 20031212, end: 20040103
  4. FLURBIPROFEN AXETIL (FLURBIPROFEN AXETIL) [Concomitant]
  5. MORPHINE [Concomitant]
  6. MORPHINE [Concomitant]
  7. MORPHINE [Concomitant]
  8. PAMIDRONATE DISODIUM (PAMIDRONATE SODIUM) [Concomitant]

REACTIONS (5)
  - ANXIETY [None]
  - CARDIAC FAILURE [None]
  - DRUG INTERACTION [None]
  - PERICARDIAL EFFUSION [None]
  - RESPIRATORY DEPRESSION [None]
